FAERS Safety Report 4641284-4 (Version None)
Quarter: 2005Q2

REPORT INFORMATION
  Report Type: 
  Country: None (occurrence: None)
  Receive Date: 20050419
  Receipt Date: 20050405
  Transmission Date: 20051028
  Serious: No
  Sender: FDA-Public Use
  Company Number: 05P-013-0296502-00

PATIENT
  Sex: Female

DRUGS (3)
  1. HUMIRA [Suspect]
     Indication: RHEUMATOID ARTHRITIS
     Dosage: 40 MG, 1 IN 2 WK, SUBCUTANEOUS
     Route: 058
     Dates: start: 20200825, end: 20041222
  2. CYCLOSPORINE [Concomitant]
  3. METHYLPREDNISOLONE [Concomitant]

REACTIONS (1)
  - SEBORRHOEIC DERMATITIS [None]
